FAERS Safety Report 4492871-8 (Version None)
Quarter: 2004Q4

REPORT INFORMATION
  Report Type: 
  Country: None (occurrence: None)
  Receive Date: 20041102
  Receipt Date: 20041018
  Transmission Date: 20050328
  Serious: Yes (Death, Hospitalization)
  Sender: FDA-Public Use
  Company Number: 2004-UK-00020UK

PATIENT
  Age: 90 Year
  Sex: Female

DRUGS (7)
  1. MOBIC [Suspect]
     Dosage: 30 MG  (1 DAILY) PO
     Route: 048
     Dates: end: 20040105
  2. FLUOXETINE [Suspect]
     Dosage: 20 MG (1 IN 1 D) PO
     Route: 048
  3. ASPIRIN [Suspect]
     Dosage: 75 MG (1 IN 1 D) PO
     Route: 048
  4. PREDNISOLONE [Suspect]
     Dosage: 2 TABLETS DAILY (2 IN 1 D) PO
     Route: 048
  5. BUMETANIDE [Suspect]
     Dosage: 1 TABLET DAILY (1 IN 1 D) PO
     Route: 048
  6. ENALAPRIL (ENALAPRIL) [Suspect]
     Dosage: 20 MG (1 IN 1 D) PO
     Route: 048
  7. BELLADONNA EXTRACT [Suspect]
     Dosage: 40 MG (1 IN 1 D) PO
     Route: 048

REACTIONS (1)
  - MELAENA [None]
